FAERS Safety Report 5669205-6 (Version None)
Quarter: 2008Q1

REPORT INFORMATION
  Report Type: 
  Country: None (occurrence: None)
  Receive Date: 20080317
  Receipt Date: 20080312
  Transmission Date: 20080703
  Serious: Yes (Other)
  Sender: FDA-Public Use
  Company Number: JP-BRISTOL-MYERS SQUIBB COMPANY-14116420

PATIENT
  Age: 52 Year
  Sex: Female

DRUGS (2)
  1. TAXOL [Suspect]
     Indication: VAGINAL CANCER
  2. PARAPLATIN [Suspect]
     Indication: VAGINAL CANCER

REACTIONS (2)
  - GENERALISED OEDEMA [None]
  - RHABDOMYOLYSIS [None]
